FAERS Safety Report 6671891-9 (Version None)
Quarter: 2010Q2

REPORT INFORMATION
  Report Type: 
  Country: None (occurrence: None)
  Receive Date: 20100407
  Receipt Date: 20100326
  Transmission Date: 20101027
  Serious: Yes (Hospitalization)
  Sender: FDA-Public Use
  Company Number: US-PFIZER INC-2010038494

PATIENT
  Sex: Male
  Weight: 105 kg

DRUGS (10)
  1. PEGVISOMANT [Suspect]
     Indication: PROSTATE CANCER
     Dosage: 10 MG, 1X/DAY
     Route: 058
     Dates: start: 20100310
  2. CP-751,871 [Suspect]
     Indication: PROSTATE CANCER
     Dosage: 2228 MG, DAY 1 AND 2 OF CYCLE 1, DAY 1 OF CYCLE 2 AND EVERY 3 WEEKS ONWARDS OR EVERY 3 WEEKS
     Route: 042
     Dates: start: 20100217
  3. ADVAIR DISKUS 100/50 [Concomitant]
     Indication: DYSPNOEA
  4. ALBUTEROL [Concomitant]
     Indication: DYSPNOEA
  5. ZIAC [Concomitant]
     Indication: HYPERTENSION
  6. CALCITRIOL [Concomitant]
     Indication: SUPPLEMENTATION THERAPY
  7. CALCIUM [Concomitant]
     Indication: SUPPLEMENTATION THERAPY
  8. VITAMIN D3 [Concomitant]
     Indication: SUPPLEMENTATION THERAPY
  9. VALSARTAN [Concomitant]
     Indication: HYPERTENSION
  10. HYDROCHLOROTHIAZIDE [Concomitant]
     Indication: HYPERTENSION

REACTIONS (1)
  - GASTROINTESTINAL HAEMORRHAGE [None]
